FAERS Safety Report 4375634-3 (Version None)
Quarter: 2004Q2

REPORT INFORMATION
  Report Type: 
  Country: None (occurrence: None)
  Receive Date: 20040607
  Receipt Date: 20040519
  Transmission Date: 20050107
  Serious: Yes (Death)
  Sender: FDA-Public Use
  Company Number: 8086

PATIENT
  Age: 75 Year
  Sex: Female

DRUGS (9)
  1. METHOTREXATE [Suspect]
     Dosage: 25 MG WEEKLY SC
     Route: 058
     Dates: start: 19930505
  2. REMICADE [Suspect]
     Dosage: 3 MG/KG FREQ IV
     Route: 042
     Dates: start: 20020510, end: 20030618
  3. PREDNISONE [Suspect]
     Dosage: 20 MG BID
     Dates: start: 20030618
  4. NEURONTIN [Suspect]
     Dosage: 300 MG
     Dates: start: 20030509
  5. TRICOR [Suspect]
     Dosage: 54 MG BID
  6. FOLIC ACID [Suspect]
     Dosage: 1 MG DAILY
  7. BUMEX [Suspect]
     Dosage: 1 MG DAILY
  8. ATENOLOL [Suspect]
     Dosage: 25 MG DAILY
  9. DARVOCET-N 100 [Suspect]

REACTIONS (2)
  - GUILLAIN-BARRE SYNDROME [None]
  - INTESTINAL PERFORATION [None]
